APPROVED DRUG PRODUCT: ISENTRESS
Active Ingredient: RALTEGRAVIR POTASSIUM
Strength: EQ 100MG BASE/PACKET
Dosage Form/Route: POWDER;ORAL
Application: N205786 | Product #001
Applicant: MERCK SHARP AND DOHME LLC A SUB OF MERCK AND CO INC
Approved: Dec 20, 2013 | RLD: Yes | RS: Yes | Type: RX

PATENTS:
Patent 7754731 | Expires: Mar 11, 2029
Patent 7754731*PED | Expires: Sep 11, 2029